FAERS Safety Report 16544161 (Version 3)
Quarter: 2019Q3

REPORT INFORMATION
  Report Type: Spontaneous
  Country: US (occurrence: US)
  Receive Date: 20190709
  Receipt Date: 20190718
  Transmission Date: 20191004
  Serious: No
  Sender: FDA-Public Use
  Company Number: US-GLAXOSMITHKLINE-US2019121851

PATIENT
  Age: 87 Year
  Sex: Female

DRUGS (1)
  1. INCRUSE ELLIPTA [Suspect]
     Active Substance: UMECLIDINIUM BROMIDE
     Indication: PRODUCT USED FOR UNKNOWN INDICATION
     Dosage: UNK
     Route: 055
     Dates: start: 20190703

REACTIONS (10)
  - Malaise [Recovering/Resolving]
  - Ear discomfort [Recovering/Resolving]
  - Throat tightness [Recovering/Resolving]
  - Sneezing [Recovering/Resolving]
  - Secretion discharge [Recovering/Resolving]
  - Choking sensation [Recovering/Resolving]
  - Cough [Not Recovered/Not Resolved]
  - Sputum discoloured [Recovering/Resolving]
  - Productive cough [Recovering/Resolving]
  - Dyspnoea [Recovering/Resolving]

NARRATIVE: CASE EVENT DATE: 201907
